FAERS Safety Report 9959015 (Version 1)
Quarter: 2014Q1

REPORT INFORMATION
  Report Type: Report from Study
  Country: US (occurrence: US)
  Receive Date: 20140305
  Receipt Date: 20140305
  Transmission Date: 20141002
  Serious: No
  Sender: FDA-Public Use
  Company Number: US-ABBVIE-13P-163-1104406-00

PATIENT
  Age: 57 Year
  Sex: Male

DRUGS (5)
  1. HUMIRA [Suspect]
     Indication: CROHN^S DISEASE
     Route: 058
     Dates: start: 20130508, end: 20130508
  2. HUMIRA [Suspect]
     Route: 058
     Dates: start: 20130522, end: 20130522
  3. HUMIRA [Suspect]
     Route: 058
     Dates: start: 20130606
  4. ADVIL [Concomitant]
     Indication: PAIN
  5. FLOMAX [Concomitant]
     Indication: POLLAKIURIA
     Dates: start: 201306

REACTIONS (1)
  - Injection site pruritus [Recovering/Resolving]
